FAERS Safety Report 5513775-5 (Version None)
Quarter: 2007Q4

REPORT INFORMATION
  Report Type: 
  Country: None (occurrence: None)
  Receive Date: 20071106
  Receipt Date: 20060920
  Transmission Date: 20080405
  Serious: Yes (Other)
  Sender: FDA-Public Use
  Company Number: US-JNJFOC-20061000327

PATIENT
  Sex: Male

DRUGS (8)
  1. MOTRIN [Suspect]
     Indication: DRUG USE FOR UNKNOWN INDICATION
     Dosage: ^FOR MANY YEARS^
  2. ASCORBIC ACID [Concomitant]
  3. CALCIUM (CALCIUM) [Concomitant]
  4. MAGNESIUM (MAGNESIUM) [Concomitant]
  5. ZINC (ZINC) [Concomitant]
  6. HEART MEDICATION (CARDIAC THERAPY) [Concomitant]
  7. VICODIN [Concomitant]
  8. TYLENOL W/ CODEINE [Concomitant]

REACTIONS (2)
  - GASTRIC HAEMORRHAGE [None]
  - GASTRIC PERFORATION [None]
